FAERS Safety Report 13251345 (Version 3)
Quarter: 2017Q2

REPORT INFORMATION
  Report Type: Spontaneous
  Country: JP (occurrence: JP)
  Receive Date: 20170220
  Receipt Date: 20170613
  Transmission Date: 20170830
  Serious: Yes (Other)
  Sender: FDA-Public Use
  Company Number: JP-CONCORDIA PHARMACEUTICALS INC.-GSH201702-001165

PATIENT
  Age: 20 Year
  Sex: Male

DRUGS (13)
  1. SARPOGRELATE [Concomitant]
     Active Substance: SARPOGRELATE
  2. LIXIANA [Concomitant]
     Active Substance: EDOXABAN TOSYLATE
  3. URINORM [Concomitant]
     Active Substance: BENZBROMARONE
  4. VITAMINS NOS [Concomitant]
     Active Substance: VITAMINS
  5. PROGRAF [Concomitant]
     Active Substance: TACROLIMUS\TACROLIMUS ANHYDROUS
  6. BONALON [Concomitant]
     Active Substance: ALENDRONATE SODIUM
  7. JUVELA N [Concomitant]
     Active Substance: TOCOPHERYL NICOTINATE, D-.ALPHA.
  8. IMURAN [Concomitant]
     Active Substance: AZATHIOPRINE
  9. ALFAROL [Concomitant]
     Active Substance: ALFACALCIDOL
  10. PLAQUENIL [Suspect]
     Active Substance: HYDROXYCHLOROQUINE SULFATE
     Indication: CUTANEOUS LUPUS ERYTHEMATOSUS
     Route: 048
     Dates: start: 20151121, end: 20151204
  11. RABEPRAZOLE SODIUM. [Concomitant]
     Active Substance: RABEPRAZOLE SODIUM
  12. AMLODIPINE [Concomitant]
     Active Substance: AMLODIPINE BESYLATE
  13. BAKTAR [Concomitant]
     Active Substance: SULFAMETHOXAZOLE\TRIMETHOPRIM

REACTIONS (1)
  - Toxic skin eruption [Recovered/Resolved]

NARRATIVE: CASE EVENT DATE: 20151204
